FAERS Safety Report 16944807 (Version 2)
Quarter: 2019Q4

REPORT INFORMATION
  Report Type: Spontaneous
  Country: US (occurrence: US)
  Receive Date: 20191022
  Receipt Date: 20191105
  Transmission Date: 20200122
  Serious: Yes (Life-Threatening, Hospitalization, Other)
  Sender: FDA-Public Use
  Company Number: US-PFIZER INC-2019447890

PATIENT
  Age: 23 Year
  Sex: Female
  Weight: 76.64 kg

DRUGS (1)
  1. DILANTIN [Suspect]
     Active Substance: PHENYTOIN
     Indication: SEIZURE
     Dosage: 300 MG, 2X/DAY
     Route: 048
     Dates: start: 2013, end: 2013

REACTIONS (21)
  - Swollen tongue [Recovered/Resolved]
  - Swelling face [Recovered/Resolved]
  - Dry skin [Not Recovered/Not Resolved]
  - Malaise [Unknown]
  - Lip swelling [Recovered/Resolved]
  - Dysphonia [Unknown]
  - Oral candidiasis [Unknown]
  - Skin exfoliation [Recovering/Resolving]
  - Blister [Recovered/Resolved]
  - Pain of skin [Recovering/Resolving]
  - Visual impairment [Recovered/Resolved]
  - Eye swelling [Unknown]
  - Pruritus [Not Recovered/Not Resolved]
  - Weight decreased [Recovering/Resolving]
  - Speech disorder [Unknown]
  - Dyspnoea [Unknown]
  - Scar [Not Recovered/Not Resolved]
  - Hypoacusis [Unknown]
  - Skin fissures [Unknown]
  - Stevens-Johnson syndrome [Unknown]
  - Rash [Not Recovered/Not Resolved]

NARRATIVE: CASE EVENT DATE: 2013
